FAERS Safety Report 4614956-5 (Version None)
Quarter: 2005Q1

REPORT INFORMATION
  Report Type: 
  Country: None (occurrence: None)
  Receive Date: 20050318
  Receipt Date: 20050318
  Transmission Date: 20050727
  Serious: Yes (Other)
  Sender: FDA-Public Use
  Company Number: None

PATIENT
  Age: 45 Year
  Sex: Female
  Weight: 58.514 kg

DRUGS (2)
  1. TOPROL-XL [Suspect]
     Indication: PALPITATIONS
     Dosage: 50 MG PO Q DAY
     Route: 048
     Dates: start: 20040801, end: 20041001
  2. ASPIRIN [Concomitant]

REACTIONS (2)
  - DEPRESSION [None]
  - SUICIDAL IDEATION [None]
